FAERS Safety Report 17416577 (Version 1)
Quarter: 2020Q1

REPORT INFORMATION
  Report Type: Spontaneous
  Country: US (occurrence: US)
  Receive Date: 20200213
  Receipt Date: 20200213
  Transmission Date: 20200409
  Serious: Yes (Other)
  Sender: FDA-Public Use
  Company Number: None

PATIENT
  Age: 57 Year
  Sex: Female
  Weight: 90 kg

DRUGS (5)
  1. LEVOTHROXINE 125MG [Concomitant]
  2. ATORVASTATIN 10MG [Concomitant]
     Active Substance: ATORVASTATIN
  3. EZETIMIBE 10MG TABLETS [Suspect]
     Active Substance: EZETIMIBE
     Dosage: ?          QUANTITY:1 TABLET(S);?
     Route: 048
     Dates: start: 20191218, end: 20191222
  4. AIMOVIG [Concomitant]
     Active Substance: ERENUMAB-AOOE
  5. IMIPRAMINE HCL 10MG TABLET [Concomitant]

REACTIONS (7)
  - Fatigue [None]
  - Disturbance in attention [None]
  - Migraine [None]
  - Dyspepsia [None]
  - Vision blurred [None]
  - Dizziness [None]
  - Rash [None]

NARRATIVE: CASE EVENT DATE: 20191218
